FAERS Safety Report 8296336-7 (Version None)
Quarter: 2012Q2

REPORT INFORMATION
  Report Type: 
  Country: None (occurrence: None)
  Receive Date: 20120418
  Receipt Date: 20120414
  Transmission Date: 20120825
  Serious: Yes (Other)
  Sender: FDA-Public Use
  Company Number: US-PFIZER INC-2012092910

PATIENT
  Sex: Female

DRUGS (3)
  1. AMITRIPTYLINE [Concomitant]
     Indication: PAIN
     Dosage: SPLITTING 25 MG TABLET DAILY
     Route: 048
  2. TOVIAZ [Suspect]
     Indication: HYPERTONIC BLADDER
     Dosage: 4 MG,DAILY IN THE MORNING
     Route: 048
     Dates: start: 20120316, end: 20120406
  3. ESTRACE [Concomitant]
     Dosage: UNK, 2X/WEEK
     Route: 067

REACTIONS (4)
  - DIZZINESS [None]
  - FEELING ABNORMAL [None]
  - PYREXIA [None]
  - DRY MOUTH [None]
